FAERS Safety Report 4684553-4 (Version None)
Quarter: 2005Q2

REPORT INFORMATION
  Report Type: 
  Country: None (occurrence: None)
  Receive Date: 20050603
  Receipt Date: 20050518
  Transmission Date: 20051028
  Serious: Yes (Hospitalization, Disabling)
  Sender: FDA-Public Use
  Company Number: DSA_60490_2005

PATIENT
  Age: 24 Year
  Sex: Male

DRUGS (2)
  1. DIAZEPAM [Suspect]
     Dosage: DF
  2. METHADONE HCL [Suspect]
     Dosage: DF

REACTIONS (14)
  - ABNORMAL BEHAVIOUR [None]
  - ACCIDENTAL OVERDOSE [None]
  - ACTIVITIES OF DAILY LIVING IMPAIRED [None]
  - APATHY [None]
  - APHASIA [None]
  - COGNITIVE DISORDER [None]
  - COMA [None]
  - DISORIENTATION [None]
  - HYPOXIA [None]
  - HYPOXIC ENCEPHALOPATHY [None]
  - INJURY [None]
  - MEMORY IMPAIRMENT [None]
  - METABOLIC DISORDER [None]
  - NEUROPATHIC PAIN [None]
